FAERS Safety Report 25798218 (Version 1)
Quarter: 2025Q3

REPORT INFORMATION
  Report Type: Spontaneous
  Country: IN (occurrence: IN)
  Receive Date: 20250912
  Receipt Date: 20250912
  Transmission Date: 20251021
  Serious: Yes (Hospitalization, Other)
  Sender: PHARMACEUTICAL ASSOC
  Company Number: IN-PAIPHARMA-2025-IN-000071

PATIENT
  Age: 12 Year
  Sex: Male

DRUGS (2)
  1. VALPROIC ACID [Suspect]
     Active Substance: VALPROIC ACID
     Indication: Mania
  2. HALOPERIDOL [Suspect]
     Active Substance: HALOPERIDOL
     Indication: Mania

REACTIONS (1)
  - Neuroleptic malignant syndrome [Recovered/Resolved]
